FAERS Safety Report 7154243-7 (Version None)
Quarter: 2010Q4

REPORT INFORMATION
  Report Type: 
  Country: None (occurrence: None)
  Receive Date: 20101213
  Receipt Date: 20101201
  Transmission Date: 20110411
  Serious: Yes (Other)
  Sender: FDA-Public Use
  Company Number: US-ROCHE-724623

PATIENT
  Sex: Male

DRUGS (12)
  1. ACCUTANE [Suspect]
     Indication: ACNE
     Route: 048
     Dates: start: 20050801, end: 20060201
  2. ACCUTANE [Suspect]
     Route: 048
     Dates: start: 20061001, end: 20070101
  3. ACCUTANE [Suspect]
     Route: 048
     Dates: start: 20070701, end: 20071001
  4. ACCUTANE [Suspect]
     Route: 048
     Dates: start: 20080101, end: 20090501
  5. AMNESTEEM [Suspect]
     Indication: ACNE
     Route: 065
     Dates: start: 20050812, end: 20060201
  6. AMNESTEEM [Suspect]
     Route: 065
     Dates: start: 20071130
  7. AMNESTEEM [Suspect]
     Route: 065
     Dates: start: 20080316
  8. CLARAVIS [Suspect]
     Indication: ACNE
     Route: 065
     Dates: start: 20080502
  9. TETRACYCLINE [Concomitant]
     Indication: ACNE
     Dosage: 500 MG 1 QID PER WEEK, 1BID PER WEEK THEN 1 DAILY .
  10. ZYRTEC-D 12 HOUR [Concomitant]
  11. CLEOCIN T [Concomitant]
     Dosage: FREQUENCY BID
     Dates: start: 20051109
  12. MINOCYCLINE HCL [Concomitant]
     Dates: start: 20050809

REACTIONS (10)
  - ABDOMINAL PAIN [None]
  - COLITIS ULCERATIVE [None]
  - ERYTHEMA [None]
  - INFLAMMATORY BOWEL DISEASE [None]
  - INTESTINAL OBSTRUCTION [None]
  - IRRITABLE BOWEL SYNDROME [None]
  - NASOPHARYNGITIS [None]
  - NAUSEA [None]
  - RASH [None]
  - RECTAL HAEMORRHAGE [None]
